FAERS Safety Report 5135804-3 (Version None)
Quarter: 2006Q4

REPORT INFORMATION
  Report Type: 
  Country: None (occurrence: None)
  Receive Date: 20061020
  Receipt Date: 20061009
  Transmission Date: 20070319
  Serious: Yes (Other)
  Sender: FDA-Public Use
  Company Number: HQWYE884911OCT06

PATIENT
  Sex: Female
  Weight: 48.12 kg

DRUGS (6)
  1. PREMARIN [Suspect]
     Indication: DEPRESSION
     Dosage: SEE IMAGE
     Dates: start: 19660101, end: 20060801
  2. PREMARIN [Suspect]
     Indication: DEPRESSION
     Dosage: SEE IMAGE
     Dates: start: 20061002
  3. PROVERA [Suspect]
     Indication: DEPRESSION
     Dosage: SEE IMAGE
     Route: 048
     Dates: start: 19660101, end: 20060801
  4. PROVERA [Suspect]
     Indication: DEPRESSION
     Dosage: SEE IMAGE
     Route: 048
     Dates: start: 20061002
  5. PERCOCET [Concomitant]
  6. ASPIRIN [Concomitant]

REACTIONS (5)
  - BLOOD PRESSURE INCREASED [None]
  - DECREASED APPETITE [None]
  - DRUG WITHDRAWAL SYNDROME [None]
  - HEADACHE [None]
  - WEIGHT DECREASED [None]
